FAERS Safety Report 21376604 (Version 3)
Quarter: 2022Q4

REPORT INFORMATION
  Report Type: Report from Study
  Country: FR (occurrence: FR)
  Receive Date: 20220926
  Receipt Date: 20221121
  Transmission Date: 20230112
  Serious: Yes (Other)
  Sender: FDA-Public Use
  Company Number: FR-GILEAD-2022-0598705

PATIENT
  Age: 54 Year
  Sex: Male
  Weight: 164 kg

DRUGS (2)
  1. SACITUZUMAB GOVITECAN [Suspect]
     Active Substance: SACITUZUMAB GOVITECAN
     Indication: Triple negative breast cancer
     Dosage: 10 MG/KG C1D1, C1D8
     Route: 065
     Dates: start: 20220513, end: 20220520
  2. SACITUZUMAB GOVITECAN [Suspect]
     Active Substance: SACITUZUMAB GOVITECAN
     Dosage: DCD AFTER 9 CYCLES
     Route: 065

REACTIONS (2)
  - Disease progression [Unknown]
  - Fatigue [Unknown]
